FAERS Safety Report 6784470-X (Version None)
Quarter: 2010Q2

REPORT INFORMATION
  Report Type: 
  Country: None (occurrence: None)
  Receive Date: 20100622
  Receipt Date: 20100611
  Transmission Date: 20101027
  Serious: Yes (Other)
  Sender: FDA-Public Use
  Company Number: US-JNJFOC-20100506570

PATIENT
  Age: 12 Month
  Sex: Female

DRUGS (6)
  1. CHILDREN'S MOTRIN [Suspect]
  2. CHILDREN'S MOTRIN [Suspect]
     Indication: DRUG USE FOR UNKNOWN INDICATION
  3. CONCENTRATED TYLENOL INFANT DROPS [Suspect]
  4. CONCENTRATED TYLENOL INFANT DROPS [Suspect]
     Indication: DRUG USE FOR UNKNOWN INDICATION
  5. CEFDINIR [Suspect]
     Indication: RASH
  6. AMOXICILLIN [Suspect]
     Indication: OEDEMA PERIPHERAL

REACTIONS (4)
  - MALAISE [None]
  - OEDEMA PERIPHERAL [None]
  - PRODUCT QUALITY ISSUE [None]
  - RASH GENERALISED [None]
